FAERS Safety Report 5494084-X (Version None)
Quarter: 2007Q4

REPORT INFORMATION
  Report Type: 
  Country: None (occurrence: None)
  Receive Date: 20071022
  Receipt Date: 20070912
  Transmission Date: 20080405
  Serious: Yes (Other)
  Sender: FDA-Public Use
  Company Number: A0681678A

PATIENT
  Age: 14 Year
  Sex: Female

DRUGS (3)
  1. CALCIUM CARBONATE (FORMULATION UNKNOWN) ASSORTED FRUIT (CALCIUM CARBON [Suspect]
     Indication: MINERAL SUPPLEMENTATION
     Dosage: ORAL
     Route: 048
     Dates: end: 20070912
  2. CETIRIZINE HYDROCHLORIDE [Concomitant]
  3. CENTRUM [Concomitant]

REACTIONS (2)
  - HORMONE LEVEL ABNORMAL [None]
  - VAGINAL HAEMORRHAGE [None]
